FAERS Safety Report 11604321 (Version 3)
Quarter: 2018Q3

REPORT INFORMATION
  Report Type: Spontaneous
  Country: US (occurrence: US)
  Receive Date: 20151007
  Receipt Date: 20180727
  Transmission Date: 20181010
  Serious: Yes (Other)
  Sender: FDA-Public Use
  Company Number: US-AMGEN-USASP2015103395

PATIENT
  Sex: Male
  Weight: 98.88 kg

DRUGS (7)
  1. ENBREL [Suspect]
     Active Substance: ETANERCEPT
     Indication: PRODUCT USED FOR UNKNOWN INDICATION
     Dosage: UNK
     Route: 065
     Dates: start: 2011
  2. CIPRO [Suspect]
     Active Substance: CIPROFLOXACIN HYDROCHLORIDE
     Indication: DIVERTICULITIS
     Dosage: UNK
     Route: 065
  3. REMICADE [Suspect]
     Active Substance: INFLIXIMAB
     Indication: PRODUCT USED FOR UNKNOWN INDICATION
     Dosage: UNK
     Route: 065
  4. XELJANZ [Concomitant]
     Active Substance: TOFACITINIB CITRATE
     Indication: RHEUMATOID ARTHRITIS
     Dosage: 5 MG, BID
     Route: 048
     Dates: start: 2014
  5. TRAMADOL. [Concomitant]
     Active Substance: TRAMADOL
     Dosage: 50 MG, SIX A DAY IN 6 TO 8 HOUR INTERVALS
  6. METHOTREXATE. [Concomitant]
     Active Substance: METHOTREXATE
     Dosage: UNK
     Dates: start: 2011
  7. IBUPROFEN. [Concomitant]
     Active Substance: IBUPROFEN
     Dosage: 800 MG, THREE TIMES A DAY

REACTIONS (10)
  - Joint swelling [Recovering/Resolving]
  - Mobility decreased [Not Recovered/Not Resolved]
  - Contusion [Unknown]
  - Diverticulitis [Unknown]
  - Rheumatoid arthritis [Unknown]
  - Fluid retention [Unknown]
  - Peripheral swelling [Recovering/Resolving]
  - Joint effusion [Unknown]
  - Drug ineffective [Unknown]
  - Pain [Recovering/Resolving]
